FAERS Safety Report 12459242 (Version 1)
Quarter: 2016Q2

REPORT INFORMATION
  Report Type: Spontaneous
  Country: CH (occurrence: CH)
  Receive Date: 20160613
  Receipt Date: 20160613
  Transmission Date: 20160815
  Serious: Yes (Other)
  Sender: FDA-Public Use
  Company Number: CH-ELI_LILLY_AND_COMPANY-CH201605010029

PATIENT
  Age: 16 Year
  Sex: Female
  Weight: 38 kg

DRUGS (5)
  1. AERIUS [Concomitant]
     Active Substance: DESLORATADINE
     Indication: BRONCHITIS
     Dosage: 5 MG, QD
     Route: 065
  2. HUMATROPE [Suspect]
     Active Substance: SOMATROPIN
     Indication: GROWTH HORMONE DEFICIENCY
     Dosage: .5 MG, QD
     Route: 058
     Dates: start: 20030108, end: 20130331
  3. HUMATROPE [Suspect]
     Active Substance: SOMATROPIN
     Indication: HYPOPITUITARISM
     Dosage: 1.4 MG, QD
     Route: 058
     Dates: start: 20141001
  4. HUMATROPE [Suspect]
     Active Substance: SOMATROPIN
     Dosage: 1.4 MG, QD
     Route: 058
     Dates: start: 20141001
  5. VITAMIN D3 WILD [Concomitant]
     Indication: HYPOVITAMINOSIS
     Dosage: 500 IU, QD
     Route: 065

REACTIONS (1)
  - Fibroadenoma of breast [Not Recovered/Not Resolved]

NARRATIVE: CASE EVENT DATE: 20141222
